FAERS Safety Report 5705330-9 (Version None)
Quarter: 2008Q2

REPORT INFORMATION
  Report Type: 
  Country: None (occurrence: None)
  Receive Date: 20080410
  Receipt Date: 20080325
  Transmission Date: 20081010
  Serious: Yes (Death, Hospitalization)
  Sender: FDA-Public Use
  Company Number: DSA_31677_2008

PATIENT
  Sex: Male

DRUGS (4)
  1. HERBESSER (HERBESSER - DILTIAZEM HYDROCHLORIDE) (NOT SPECIFIED) [Suspect]
     Indication: BLOOD PRESSURE INCREASED
     Dosage: 360 MG QD INTRAVENOUS DRIP
     Route: 041
     Dates: start: 20080222, end: 20080305
  2. RADICUT (RADICUT - EDARAVONE) [Suspect]
     Indication: CEREBRAL INFARCTION
     Dosage: 30 MG BID INTRAVENOUS DRIP
     Route: 041
     Dates: start: 20080218, end: 20080229
  3. ALEVIATIN /00017401/ (ALEVIATIN - PHENYTOIN) [Suspect]
     Indication: CONVULSION PROPHYLAXIS
     Dosage: 250 MG QD INTRAVENOUS DRIP
     Route: 041
     Dates: start: 20080220, end: 20080305
  4. GLYCEOL [Concomitant]

REACTIONS (19)
  - ALANINE AMINOTRANSFERASE INCREASED [None]
  - APNOEA [None]
  - ASPARTATE AMINOTRANSFERASE INCREASED [None]
  - BLOOD LACTATE DEHYDROGENASE INCREASED [None]
  - BLOOD PRESSURE INCREASED [None]
  - CEREBRAL INFARCTION [None]
  - DEPRESSED LEVEL OF CONSCIOUSNESS [None]
  - DYSLALIA [None]
  - GAIT DISTURBANCE [None]
  - GAMMA-GLUTAMYLTRANSFERASE INCREASED [None]
  - HEPATIC FUNCTION ABNORMAL [None]
  - INFECTION [None]
  - JAUNDICE [None]
  - LIVER DISORDER [None]
  - MULTI-ORGAN FAILURE [None]
  - MUSCULAR WEAKNESS [None]
  - RENAL IMPAIRMENT [None]
  - RESPIRATORY DISORDER [None]
  - URINE OUTPUT DECREASED [None]
